FAERS Safety Report 9572123 (Version 1)
Quarter: 2013Q4

REPORT INFORMATION
  Report Type: Spontaneous
  Country: AT (occurrence: AT)
  Receive Date: 20131001
  Receipt Date: 20131001
  Transmission Date: 20140711
  Serious: Yes (Other)
  Sender: FDA-Public Use
  Company Number: AT-PFIZER INC-2013276711

PATIENT
  Age: 60 Year
  Sex: Female

DRUGS (4)
  1. OXALIPLATIN [Suspect]
     Indication: COLON CANCER
     Dosage: UNK
  2. PREDNISOLONE [Interacting]
     Indication: MUSCLE SPASMS
     Dosage: 250 MG, UNK
     Route: 042
  3. PREDNISOLONE [Interacting]
     Indication: LARYNGOSPASM
  4. PREDNISOLONE [Interacting]
     Indication: BRONCHOSPASM

REACTIONS (10)
  - Drug interaction [Unknown]
  - Asthenia [Unknown]
  - Ophthalmoplegia [Recovering/Resolving]
  - Respiratory failure [Unknown]
  - Muscle spasms [Recovering/Resolving]
  - Laryngospasm [Unknown]
  - Bronchospasm [Unknown]
  - Dropped head syndrome [Recovering/Resolving]
  - Dysphagia [Unknown]
  - Dysarthria [Unknown]
